FAERS Safety Report 21755255 (Version 1)
Quarter: 2022Q4

REPORT INFORMATION
  Report Type: Spontaneous
  Country: US (occurrence: US)
  Receive Date: 20221220
  Receipt Date: 20221220
  Transmission Date: 20230112
  Serious: No
  Sender: FDA-Public Use
  Company Number: US-RECKITT BENCKISER HEALTHCARE INT LIMITED-RB-098262-2022

PATIENT
  Age: 93 Year
  Sex: Female
  Weight: 72.73 kg

DRUGS (1)
  1. DELSYM [Suspect]
     Active Substance: DEXTROMETHORPHAN
     Indication: Product used for unknown indication
     Dosage: 2 TABLESPOONS
     Route: 065

REACTIONS (2)
  - Incorrect dose administered [Unknown]
  - Therapeutic product effective for unapproved indication [Unknown]
